FAERS Safety Report 4774107-3 (Version None)
Quarter: 2005Q3

REPORT INFORMATION
  Report Type: 
  Country: None (occurrence: None)
  Receive Date: 20050914
  Receipt Date: 20050408
  Transmission Date: 20060218
  Serious: Yes (Other)
  Sender: FDA-Public Use
  Company Number: 163-20785-05040154

PATIENT
  Age: 62 Year
  Sex: Male

DRUGS (6)
  1. THALOMID [Suspect]
     Indication: GLIOBLASTOMA
     Dosage: 250 MG, QHS, ORAL
     Route: 048
     Dates: start: 20040901, end: 20050201
  2. ETOPOSIDE [Concomitant]
  3. CELEBREX [Concomitant]
  4. CYCLOPHOSPHAMIDE [Concomitant]
  5. HEPARIN [Concomitant]
  6. DECADRON [Concomitant]

REACTIONS (3)
  - DEEP VEIN THROMBOSIS [None]
  - DISEASE PROGRESSION [None]
  - PULMONARY EMBOLISM [None]
